FAERS Safety Report 8341172 (Version 4)
Quarter: 2013Q1

REPORT INFORMATION
  Report Type: Spontaneous
  Country: BR (occurrence: BR)
  Receive Date: 20120118
  Receipt Date: 20130319
  Transmission Date: 20140127
  Serious: Yes (Other)
  Sender: FDA-Public Use
  Company Number: BR-AMGEN-BRACT2012001534

PATIENT
  Age: 49 Year
  Sex: Female
  Weight: 47 kg

DRUGS (6)
  1. ENBREL [Suspect]
     Indication: RHEUMATOID ARTHRITIS
     Dosage: UNK
     Dates: start: 2009
  2. ENBREL [Suspect]
     Dosage: 50 MG, QWK
     Route: 058
     Dates: start: 201111
  3. METICORTEN [Concomitant]
     Dosage: 5 MG, QD (1 TABLET PER DAY)
  4. PIROXICAM [Concomitant]
     Dosage: UNK
  5. VITACAL                            /07457301/ [Concomitant]
     Dosage: UNK
  6. LABIRIN [Concomitant]
     Dosage: UNK

REACTIONS (4)
  - Chondropathy [Unknown]
  - Osteoarthritis [Unknown]
  - Drug ineffective [Unknown]
  - Injection site pain [Unknown]
